FAERS Safety Report 4874511-9 (Version None)
Quarter: 2006Q1

REPORT INFORMATION
  Report Type: 
  Country: None (occurrence: None)
  Receive Date: 20060106
  Receipt Date: 20030604
  Transmission Date: 20060701
  Serious: Yes (Hospitalization)
  Sender: FDA-Public Use
  Company Number: FR-BOEHRINGER INGELHEIM PHARMACEUTICALS, INC.-2003-FF-00292FF

PATIENT
  Sex: Female
  Weight: 100 kg

DRUGS (5)
  1. CATAPRES [Suspect]
     Indication: HYPERTENSION
     Route: 048
     Dates: start: 20030520
  2. LOXEN [Concomitant]
     Indication: HYPERTENSION
     Route: 048
  3. TRANDATE [Concomitant]
     Indication: HYPERTENSION
     Route: 048
     Dates: start: 20030401
  4. VOGALENE [Concomitant]
     Indication: ABDOMINAL PAIN UPPER
     Route: 065
     Dates: start: 20030524
  5. GAVISCON [Concomitant]
     Indication: ABDOMINAL PAIN UPPER
     Route: 065
     Dates: start: 20030524

REACTIONS (2)
  - DRUG EXPOSURE DURING PREGNANCY [None]
  - INTRA-UTERINE DEATH [None]
